FAERS Safety Report 9717274 (Version 1)
Quarter: 2013Q4

REPORT INFORMATION
  Report Type: Spontaneous
  Country: GB (occurrence: None)
  Receive Date: 20131125
  Receipt Date: 20131125
  Transmission Date: 20140711
  Serious: Yes (Life-Threatening, Hospitalization)
  Sender: FDA-Public Use
  Company Number: AUR-APL-2013-09659

PATIENT
  Age: 74 Year
  Sex: Female

DRUGS (6)
  1. SERTRALINE (SERTRALINE) [Suspect]
     Indication: DEPRESSION
     Route: 048
     Dates: start: 20131011, end: 20131022
  2. ASPIRIN (ACETYLSALICYLIC ACID) [Suspect]
     Indication: PRODUCT USED FOR UNKNOWN INDICATION
     Route: 048
  3. AMLODIPINE (AMLODIPINE) [Concomitant]
  4. LISINOPRIL (LISINOPRIL) [Concomitant]
  5. SIMVASTATIN (SIMVASTATIN) [Concomitant]
  6. ZOPICLONE (ZOPICLONE) [Concomitant]

REACTIONS (8)
  - Upper gastrointestinal haemorrhage [None]
  - Haemoglobin decreased [None]
  - Melaena [None]
  - Nausea [None]
  - Dyspepsia [None]
  - Duodenal ulcer [None]
  - Oesophagitis [None]
  - Hiatus hernia [None]
